FAERS Safety Report 9162604 (Version 2)
Quarter: 2013Q4

REPORT INFORMATION
  Report Type: Spontaneous
  Country: FR (occurrence: FR)
  Receive Date: 20130314
  Receipt Date: 20131227
  Transmission Date: 20140711
  Serious: Yes (Hospitalization, Other)
  Sender: FDA-Public Use
  Company Number: FR-VERTEX PHARMACEUTICALS INC.-2013-003513

PATIENT
  Age: 77 Year
  Sex: Female
  Weight: 65 kg

DRUGS (6)
  1. INCIVO [Suspect]
     Indication: HEPATITIS C
     Dosage: 750 MG, TID
     Dates: start: 20120124, end: 20120406
  2. COPEGUS [Suspect]
     Indication: HEPATITIS C
     Dosage: 400 MG, BID
     Dates: start: 20120124, end: 20120425
  3. PEGASYS [Suspect]
     Indication: HEPATITIS C
     Dosage: 180 ?G, QW
     Dates: start: 20120124, end: 20120425
  4. NOCTAMIDE [Concomitant]
     Indication: INSOMNIA
     Dosage: 2 MG, QD
     Dates: start: 20120202, end: 20120607
  5. CARDENSIEL [Concomitant]
     Indication: HYPERTENSION
     Dosage: 2.5 MG, BID
     Dates: start: 20110907
  6. CARDENSIEL [Concomitant]
     Dosage: DOSAGE FORM: TABLET

REACTIONS (18)
  - Asthenia [Not Recovered/Not Resolved]
  - Bronchial obstruction [Not Recovered/Not Resolved]
  - Pericardial effusion [Not Recovered/Not Resolved]
  - Urinary tract infection [Not Recovered/Not Resolved]
  - Tachycardia [Not Recovered/Not Resolved]
  - Confusional state [Not Recovered/Not Resolved]
  - Disorientation [Not Recovered/Not Resolved]
  - Abdominal pain [Not Recovered/Not Resolved]
  - Cholestasis [Unknown]
  - Pleural effusion [Unknown]
  - Bronchitis [Recovered/Resolved]
  - Bronchopneumopathy [Recovered/Resolved]
  - Oedema peripheral [Recovered/Resolved]
  - Anaemia [Unknown]
  - Diarrhoea [Not Recovered/Not Resolved]
  - Face oedema [Recovered/Resolved]
  - Fall [Unknown]
  - Urticaria [Unknown]
